FAERS Safety Report 4399572-5 (Version None)
Quarter: 2004Q3

REPORT INFORMATION
  Report Type: 
  Country: None (occurrence: None)
  Receive Date: 20040716
  Receipt Date: 20040709
  Transmission Date: 20050211
  Serious: Yes (Hospitalization)
  Sender: FDA-Public Use
  Company Number: JP-MERCK-0407USA01107

PATIENT
  Age: 77 Year
  Sex: Male

DRUGS (5)
  1. BIOFERMIN [Concomitant]
     Route: 048
  2. [THERAPY UNSPECIFIED] [Concomitant]
     Route: 048
  3. DIMETHICONE [Concomitant]
     Route: 048
  4. COZAAR [Suspect]
     Indication: HYPERTENSION
     Route: 048
     Dates: start: 20031108, end: 20040420
  5. APIRACOHL [Suspect]
     Route: 048

REACTIONS (1)
  - CHOLESTASIS [None]
